FAERS Safety Report 5186534-3 (Version None)
Quarter: 2006Q4

REPORT INFORMATION
  Report Type: 
  Country: None (occurrence: None)
  Receive Date: 20061213
  Receipt Date: 20061201
  Transmission Date: 20070319
  Serious: Yes (Other)
  Sender: FDA-Public Use
  Company Number: 2006148293

PATIENT
  Sex: Female
  Weight: 90.7194 kg

DRUGS (14)
  1. BENADRYL [Suspect]
     Indication: DEPRESSION
     Dosage: 20 TO 30 TABLETS DAILY, ORAL
     Route: 048
     Dates: start: 20050101
  2. ZOLPIDEM TARTRATE [Concomitant]
  3. ESTRADIOL [Concomitant]
  4. FUROSEMIDE [Concomitant]
  5. DULOXETINE HYDROCHLORIDE [Concomitant]
  6. ANXIOLYTICS [Concomitant]
  7. ACAMPROSATE CALCIUM [Concomitant]
  8. ESCITALOPRAM OXALATE [Concomitant]
  9. QUETIAPINE FUMARATE [Concomitant]
  10. ZIPRASIDONE HCL [Concomitant]
  11. LEUPROLIDE ACETATE [Concomitant]
  12. OBETROL [Concomitant]
  13. FOLIC ACID [Concomitant]
  14. VITAMINS WITH MINERALS [Concomitant]

REACTIONS (6)
  - DRUG ABUSER [None]
  - DRUG DEPENDENCE [None]
  - HYPOAESTHESIA [None]
  - INCORRECT DOSE ADMINISTERED [None]
  - SOMNOLENCE [None]
  - THERAPY NON-RESPONDER [None]
